FAERS Safety Report 6694282-3 (Version None)
Quarter: 2010Q2

REPORT INFORMATION
  Report Type: 
  Country: None (occurrence: None)
  Receive Date: 20100421
  Receipt Date: 20100408
  Transmission Date: 20101027
  Serious: Yes (Death, Hospitalization)
  Sender: FDA-Public Use
  Company Number: 2010AL000040

PATIENT
  Sex: Male

DRUGS (1)
  1. FOLOTYN [Suspect]
     Indication: PERIPHERAL T-CELL LYMPHOMA UNSPECIFIED

REACTIONS (3)
  - HERPES VIRUS INFECTION [None]
  - INTESTINAL ISCHAEMIA [None]
  - MUCOSAL INFLAMMATION [None]
